FAERS Safety Report 5110374-4 (Version None)
Quarter: 2006Q3

REPORT INFORMATION
  Report Type: 
  Country: None (occurrence: None)
  Receive Date: 20060921
  Receipt Date: 20060815
  Transmission Date: 20061208
  Serious: Yes (Death)
  Sender: FDA-Public Use
  Company Number: JP-SANOFI-SYNTHELABO-A01200606750

PATIENT
  Sex: Male
  Weight: 59 kg

DRUGS (9)
  1. SUCRALFATE [Concomitant]
     Route: 048
     Dates: start: 19960301, end: 20060803
  2. RANITIDINE HYDROCHLORIDE [Concomitant]
     Route: 048
     Dates: start: 19960301, end: 20060803
  3. HYDROCORTISONE [Concomitant]
     Route: 048
     Dates: start: 19980206, end: 20060802
  4. OXALIPLATIN [Suspect]
     Indication: LARGE INTESTINE CARCINOMA
     Dosage: 140MG/BODY
     Route: 042
     Dates: start: 20060725, end: 20060725
  5. FLUOROURACIL [Suspect]
     Indication: LARGE INTESTINE CARCINOMA
     Dosage: BOLUS THEN 3300 MG/BODY
     Route: 042
     Dates: start: 20060725, end: 20060726
  6. LEUCOVORIN CALCIUM [Suspect]
     Indication: LARGE INTESTINE CARCINOMA
     Dosage: 350MG/BODY
     Route: 042
     Dates: start: 20060725, end: 20060726
  7. NOVOLIN R [Concomitant]
     Dosage: UNK
     Route: 042
     Dates: start: 19970401, end: 20060803
  8. KYTRIL [Concomitant]
     Route: 042
     Dates: start: 20060627, end: 20060725
  9. DECADRON [Concomitant]
     Route: 042
     Dates: start: 20060627, end: 20060725

REACTIONS (5)
  - COLD SWEAT [None]
  - DEPRESSED LEVEL OF CONSCIOUSNESS [None]
  - INCONTINENCE [None]
  - INTERSTITIAL LUNG DISEASE [None]
  - RESPIRATORY ARREST [None]
